FAERS Safety Report 6768157-5 (Version None)
Quarter: 2010Q2

REPORT INFORMATION
  Report Type: 
  Country: None (occurrence: None)
  Receive Date: 20100614
  Receipt Date: 20100517
  Transmission Date: 20101027
  Serious: Yes (Hospitalization)
  Sender: FDA-Public Use
  Company Number: PA-JNJFOC-20070603617

PATIENT
  Sex: Female
  Weight: 85.73 kg

DRUGS (2)
  1. OLANZAPINE [Suspect]
     Route: 048
  2. OLANZAPINE [Suspect]
     Indication: BIPOLAR I DISORDER
     Route: 048

REACTIONS (1)
  - MANIA [None]
